FAERS Safety Report 23949993 (Version 1)
Quarter: 2024Q2

REPORT INFORMATION
  Report Type: Report from Study
  Country: US (occurrence: None)
  Receive Date: 20240607
  Receipt Date: 20240607
  Transmission Date: 20240715
  Serious: Yes (Other)
  Sender: FDA-Public Use
  Company Number: 2024A127899

PATIENT
  Age: 56 Year
  Sex: Female
  Weight: 65 kg

DRUGS (1)
  1. FASENRA [Suspect]
     Active Substance: BENRALIZUMAB
     Indication: Asthma
     Dosage: 30MG/ML SIX TIMES A WEEK
     Route: 058
     Dates: start: 20210101

REACTIONS (2)
  - Ligament rupture [Unknown]
  - Joint injury [Unknown]

NARRATIVE: CASE EVENT DATE: 20240530
